FAERS Safety Report 13421412 (Version 1)
Quarter: 2017Q2

REPORT INFORMATION
  Report Type: Spontaneous
  Country: FR (occurrence: FR)
  Receive Date: 20170410
  Receipt Date: 20170410
  Transmission Date: 20170830
  Serious: Yes (Hospitalization)
  Sender: FDA-Public Use
  Company Number: FR-ACCORD-049930

PATIENT
  Age: 80 Year
  Sex: Female

DRUGS (8)
  1. ISOPTINE [Suspect]
     Active Substance: VERAPAMIL HYDROCHLORIDE
     Indication: HYPERTENSION
     Dosage: 120 MG TWICE DAILY (IN THE MORNING AND IN THE?EVENING)
     Route: 048
  2. KARDEGIC [Suspect]
     Active Substance: ASPIRIN LYSINE
     Indication: ISCHAEMIC HEART DISEASE PROPHYLAXIS
     Dosage: 75 MG ONCE DAILY IN THE MORNING
     Route: 048
  3. LAROXYL [Suspect]
     Active Substance: AMITRIPTYLINE
     Indication: DEPRESSION
     Dosage: 50 MG ONCE DAILY IN THE EVENING
     Route: 048
  4. PRAVASTATINE ACCORD [Suspect]
     Active Substance: PRAVASTATIN SODIUM
     Indication: HYPERCHOLESTEROLAEMIA
     Dosage: 20 MG ONCE DAILY IN THE EVENING
     Route: 048
  5. EUPRESSYL [Suspect]
     Active Substance: URAPIDIL
     Indication: HYPERTENSION
     Dosage: 30 MG TWICE DAILY (IN THE MORNING AND IN THE EVENING)
     Route: 048
  6. EPINITRIL [Concomitant]
     Active Substance: NITROGLYCERIN
     Indication: PRODUCT USED FOR UNKNOWN INDICATION
  7. DOLIPRANE [Concomitant]
     Active Substance: ACETAMINOPHEN
     Indication: PRODUCT USED FOR UNKNOWN INDICATION
  8. TRANXENE T-TAB [Suspect]
     Active Substance: CLORAZEPATE DIPOTASSIUM
     Indication: ANXIETY
     Dosage: 25 MG DAILY (10 MG IN THE MORNING, 5 MG AT NOON AND 10 MG IN THE EVENING)
     Route: 048

REACTIONS (1)
  - Colitis ischaemic [Recovering/Resolving]
